FAERS Safety Report 15803013 (Version 1)
Quarter: 2019Q1

REPORT INFORMATION
  Report Type: Spontaneous
  Country: US (occurrence: US)
  Receive Date: 20190109
  Receipt Date: 20190109
  Transmission Date: 20190417
  Serious: Yes (Death, Hospitalization, Disabling, Other)
  Sender: FDA-Public Use
  Company Number: US-JNJFOC-20190107673

PATIENT
  Age: 76 Year
  Sex: Male

DRUGS (1)
  1. INVOKANA [Suspect]
     Active Substance: CANAGLIFLOZIN
     Indication: TYPE 2 DIABETES MELLITUS
     Route: 048
     Dates: start: 20130612, end: 20180215

REACTIONS (4)
  - Dry gangrene [Unknown]
  - Skin ulcer [Unknown]
  - Amputation [Unknown]
  - Gangrene [Unknown]

NARRATIVE: CASE EVENT DATE: 2016
